FAERS Safety Report 24788467 (Version 1)
Quarter: 2024Q4

REPORT INFORMATION
  Report Type: Spontaneous
  Country: US (occurrence: US)
  Receive Date: 20241230
  Receipt Date: 20241230
  Transmission Date: 20250114
  Serious: No
  Sender: SANOFI AVENTIS
  Company Number: US-SA-2024SA383383

PATIENT
  Age: 73 Year
  Sex: Female
  Weight: 104.55 kg

DRUGS (14)
  1. DUPIXENT [Suspect]
     Active Substance: DUPILUMAB
     Indication: Asthma
     Dosage: 300 MG, QOW
     Route: 058
     Dates: start: 20220901
  2. ALBUTEROL SULFATE [Concomitant]
     Active Substance: ALBUTEROL SULFATE
  3. CARVEDILOL [Concomitant]
     Active Substance: CARVEDILOL
  4. PRAVASTATIN SODIUM [Concomitant]
     Active Substance: PRAVASTATIN SODIUM
  5. ASPIRIN [Concomitant]
     Active Substance: ASPIRIN
  6. LEVOTHYROXINE SODIUM [Concomitant]
     Active Substance: LEVOTHYROXINE SODIUM
  7. LISINOPRIL AND HYDROCHLOROTHIAZIDE [Concomitant]
     Active Substance: HYDROCHLOROTHIAZIDE\LISINOPRIL
  8. EZETIMIBE [Concomitant]
     Active Substance: EZETIMIBE
  9. TRAZODONE HCL [Concomitant]
     Active Substance: TRAZODONE HYDROCHLORIDE
  10. FLUOXETINE HYDROCHLORIDE [Concomitant]
     Active Substance: FLUOXETINE HYDROCHLORIDE
  11. ISOSORBIDE MONONITRATE [Concomitant]
     Active Substance: ISOSORBIDE MONONITRATE
  12. VITAMIN D [Concomitant]
     Active Substance: VITAMIN D NOS
  13. ALLEGRA ALLERGY [Concomitant]
     Active Substance: FEXOFENADINE HYDROCHLORIDE
  14. DESVENLAFAXINE [Concomitant]
     Active Substance: DESVENLAFAXINE

REACTIONS (4)
  - COVID-19 [Unknown]
  - Dyspnoea [Unknown]
  - Myalgia [Unknown]
  - Asthma [Unknown]

NARRATIVE: CASE EVENT DATE: 20240101
